FAERS Safety Report 7511992-6 (Version None)
Quarter: 2011Q2

REPORT INFORMATION
  Report Type: 
  Country: None (occurrence: None)
  Receive Date: 20110531
  Receipt Date: 20110518
  Transmission Date: 20111010
  Serious: Yes (Hospitalization)
  Sender: FDA-Public Use
  Company Number: PHHY2011FR43439

PATIENT
  Sex: Female

DRUGS (16)
  1. TRANXENE [Suspect]
     Dosage: 10 MG, TID
     Route: 048
     Dates: start: 20110112, end: 20110128
  2. ZOLPIDEM [Suspect]
     Indication: INSOMNIA
     Dosage: 10 MG, QD
     Dates: end: 20110203
  3. PIPORTIL [Concomitant]
     Dosage: UNK
     Dates: start: 20101014, end: 20101215
  4. DIHYDROERGOTAMINE MESYLATE [Concomitant]
     Indication: DIZZINESS
     Dosage: UNK
     Dates: start: 20101118, end: 20101218
  5. PRAZEPAM [Concomitant]
     Dosage: UNK
  6. VASTAREL [Concomitant]
  7. CLONAZEPAM [Suspect]
     Indication: INSOMNIA
     Dosage: UNK
     Dates: end: 20110203
  8. TANGANIL [Concomitant]
     Indication: DIZZINESS
  9. ACETAMINOPHEN W/ PROPOXYPHENE HCL [Concomitant]
     Indication: DIZZINESS
  10. ACETAMINOPHEN W/ PROPOXYPHENE HCL [Concomitant]
     Indication: TINNITUS
  11. LOXAPINE HCL [Suspect]
     Indication: AGITATION
     Dosage: 25 MG, QD
     Dates: start: 20101222, end: 20110128
  12. TEGRETOL [Suspect]
     Indication: DEPRESSION
     Dosage: 2 DF, UNK
     Route: 048
     Dates: start: 20101222, end: 20110128
  13. LUDIOMIL [Suspect]
     Indication: DEPRESSION
     Dosage: 37.5 MG, TID
     Dates: start: 20101222, end: 20110128
  14. TRANXENE [Suspect]
     Indication: ANXIETY
     Dosage: 100 MG, UNK
     Dates: start: 20101222, end: 20110112
  15. PAROXETINE HCL [Concomitant]
     Dosage: UNK
     Dates: end: 20101222
  16. NOCTAMID [Concomitant]
     Indication: INSOMNIA
     Dosage: 2 MG, UNK
     Dates: start: 20101222, end: 20110117

REACTIONS (18)
  - ASTHENIA [None]
  - LYMPHADENOPATHY [None]
  - PYREXIA [None]
  - GENERAL PHYSICAL HEALTH DETERIORATION [None]
  - SKIN EXFOLIATION [None]
  - GAMMA-GLUTAMYLTRANSFERASE INCREASED [None]
  - SKIN OEDEMA [None]
  - PREALBUMIN DECREASED [None]
  - RASH MACULO-PAPULAR [None]
  - LEUKOCYTOSIS [None]
  - EOSINOPHILIA [None]
  - OEDEMA PERIPHERAL [None]
  - HEPATOMEGALY [None]
  - RASH GENERALISED [None]
  - CHEILITIS [None]
  - MONONUCLEOSIS SYNDROME [None]
  - URTICARIA [None]
  - SPLENOMEGALY [None]
